FAERS Safety Report 8538594-7 (Version None)
Quarter: 2012Q3

REPORT INFORMATION
  Report Type: 
  Country: None (occurrence: None)
  Receive Date: 20120718
  Receipt Date: 20120718
  Transmission Date: 20120928
  Serious: Yes (Other)
  Sender: FDA-Public Use
  Company Number: None

PATIENT
  Age: 59 Year
  Sex: Female
  Weight: 56.6996 kg

DRUGS (2)
  1. ERYTHROMYCIN [Suspect]
     Indication: HERPES ZOSTER
     Dosage: 1/2 RIBBON 4 TIMES DIALY 6/22 - 2 TIMES; 6/23 - 4 TIMES
     Dates: start: 20120622
  2. ERYTHROMYCIN [Suspect]
     Indication: HERPES ZOSTER
     Dosage: 1/2 RIBBON 4 TIMES DIALY 6/22 - 2 TIMES; 6/23 - 4 TIMES
     Dates: start: 20120623

REACTIONS (3)
  - EYE OEDEMA [None]
  - OCULAR HYPERAEMIA [None]
  - HYPERSENSITIVITY [None]
